FAERS Safety Report 17570714 (Version 1)
Quarter: 2020Q1

REPORT INFORMATION
  Report Type: Spontaneous
  Country: JP (occurrence: JP)
  Receive Date: 20200323
  Receipt Date: 20200323
  Transmission Date: 20200409
  Serious: Yes (Other)
  Sender: FDA-Public Use
  Company Number: NVSJ2020JP003424

PATIENT
  Sex: Male

DRUGS (1)
  1. COSENTYX [Suspect]
     Active Substance: SECUKINUMAB
     Indication: PRODUCT USED FOR UNKNOWN INDICATION
     Dosage: USED FOR ALMOST 3 YEARS,SELF-INJECTION ONCE EVERY 40 DAYS
     Route: 058

REACTIONS (3)
  - Gait inability [Unknown]
  - Product administration interrupted [Unknown]
  - Cellulitis [Unknown]
